FAERS Safety Report 19146570 (Version 1)
Quarter: 2021Q2

REPORT INFORMATION
  Report Type: Report from Study
  Country: US (occurrence: US)
  Receive Date: 20210416
  Receipt Date: 20210416
  Transmission Date: 20210717
  Serious: Yes (Disabling)
  Sender: FDA-Public Use
  Company Number: US-JNJFOC-20210306491

PATIENT
  Age: 74 Year
  Sex: Female
  Weight: 50.39 kg

DRUGS (3)
  1. ELIQUIS [Concomitant]
     Active Substance: APIXABAN
  2. SILDENAFIL CITRATE. [Concomitant]
     Active Substance: SILDENAFIL CITRATE
     Indication: PULMONARY ARTERIAL HYPERTENSION
     Dates: start: 201807
  3. MACITENTAN [Suspect]
     Active Substance: MACITENTAN
     Indication: PULMONARY ARTERIAL HYPERTENSION
     Route: 048
     Dates: start: 20210226, end: 20210312

REACTIONS (10)
  - Abdominal pain upper [Not Recovered/Not Resolved]
  - Oedema [Recovering/Resolving]
  - Fatigue [Not Recovered/Not Resolved]
  - Adverse reaction [Unknown]
  - Limb discomfort [Unknown]
  - Nervousness [Recovering/Resolving]
  - Hypersomnia [Unknown]
  - Dyspnoea [Recovering/Resolving]
  - Peripheral swelling [Not Recovered/Not Resolved]
  - Muscular weakness [Not Recovered/Not Resolved]

NARRATIVE: CASE EVENT DATE: 20210301
